FAERS Safety Report 18406102 (Version 1)
Quarter: 2020Q4

REPORT INFORMATION
  Report Type: Report from Study
  Country: JP (occurrence: JP)
  Receive Date: 20201020
  Receipt Date: 20201020
  Transmission Date: 20210114
  Serious: Yes (Death, Hospitalization, Other)
  Sender: FDA-Public Use
  Company Number: JP-INCYTE CORPORATION-2020IN008464

PATIENT

DRUGS (17)
  1. JAKAVI [Suspect]
     Active Substance: RUXOLITINIB
     Dosage: 10 MG, QW3
     Route: 048
     Dates: start: 20160902, end: 20160909
  2. JAKAVI [Suspect]
     Active Substance: RUXOLITINIB
     Dosage: 10 MG, QW3
     Route: 048
     Dates: start: 20160930, end: 20170225
  3. THYRADIN [Concomitant]
     Active Substance: LEVOTHYROXINE
     Indication: PRODUCT USED FOR UNKNOWN INDICATION
     Dosage: UNK
     Route: 048
  4. RISUMIC [Concomitant]
     Active Substance: AMEZINIUM METILSULFATE
     Indication: PRODUCT USED FOR UNKNOWN INDICATION
     Dosage: UNK
     Route: 048
  5. RENAGEL [Concomitant]
     Active Substance: SEVELAMER HYDROCHLORIDE
     Indication: PRODUCT USED FOR UNKNOWN INDICATION
     Dosage: UNK
     Route: 048
  6. JAKAVI [Suspect]
     Active Substance: RUXOLITINIB
     Dosage: 10 MG, QW3
     Route: 048
     Dates: start: 20171201, end: 20180109
  7. PLATELETS [Concomitant]
     Active Substance: HUMAN PLATELET, ALLOGENIC
     Indication: MYELOFIBROSIS
     Dosage: 10 DF
     Route: 042
     Dates: start: 20170227, end: 20171120
  8. PARIET [Concomitant]
     Active Substance: RABEPRAZOLE SODIUM
     Indication: PRODUCT USED FOR UNKNOWN INDICATION
     Dosage: UNK
     Route: 048
  9. ONEALFA [Concomitant]
     Active Substance: ALFACALCIDOL
     Indication: PRODUCT USED FOR UNKNOWN INDICATION
     Dosage: UNK
     Route: 048
  10. JAKAVI [Suspect]
     Active Substance: RUXOLITINIB
     Dosage: 15 MG, QW3
     Route: 048
     Dates: start: 20160909, end: 20160930
  11. CONCENTRATED RED CELLS [Concomitant]
     Active Substance: HUMAN RED BLOOD CELL
     Indication: MYELOFIBROSIS
     Dosage: 2 DF
     Route: 042
  12. FEBURIC [Concomitant]
     Active Substance: FEBUXOSTAT
     Indication: PRODUCT USED FOR UNKNOWN INDICATION
     Dosage: UNK
     Route: 048
  13. JAKAVI [Suspect]
     Active Substance: RUXOLITINIB
     Indication: MYELOFIBROSIS
     Dosage: 5 MG, QW3
     Route: 048
     Dates: start: 20160826, end: 20160902
  14. JAKAVI [Suspect]
     Active Substance: RUXOLITINIB
     Dosage: 10 MG, QW3
     Route: 048
     Dates: start: 20170311, end: 20170510
  15. JAKAVI [Suspect]
     Active Substance: RUXOLITINIB
     Dosage: 15 MG, QW3
     Route: 048
     Dates: start: 20170510, end: 20170802
  16. JAKAVI [Suspect]
     Active Substance: RUXOLITINIB
     Dosage: 20 MG, QW3
     Route: 048
     Dates: start: 20170802, end: 20171116
  17. NESP [Concomitant]
     Active Substance: DARBEPOETIN ALFA
     Indication: MYELOFIBROSIS
     Dosage: 60 UG
     Route: 065
     Dates: start: 20161021, end: 20161028

REACTIONS (9)
  - Cardiac failure acute [Fatal]
  - Inappropriate schedule of product administration [Unknown]
  - Myelosuppression [Not Recovered/Not Resolved]
  - Rectal perforation [Unknown]
  - Renal failure [Unknown]
  - Myelosuppression [Recovered/Resolved]
  - Septic shock [Recovering/Resolving]
  - Splenomegaly [Not Recovered/Not Resolved]
  - Aortic valve stenosis [Unknown]

NARRATIVE: CASE EVENT DATE: 20160930
